FAERS Safety Report 24005828 (Version 1)
Quarter: 2024Q2

REPORT INFORMATION
  Report Type: Spontaneous
  Country: US (occurrence: None)
  Receive Date: 20240623
  Receipt Date: 20240623
  Transmission Date: 20240716
  Serious: Yes (Death)
  Sender: FDA-Public Use
  Company Number: None

PATIENT
  Age: 76 Year
  Sex: Female
  Weight: 50.4 kg

DRUGS (2)
  1. RIFAMPIN [Suspect]
     Active Substance: RIFAMPIN
     Indication: Mycobacterium avium complex infection
     Dosage: 2 CAPSULES ORAL
     Route: 048
     Dates: start: 20240410
  2. AZITHROMYCIN [Suspect]
     Active Substance: AZITHROMYCIN
     Indication: Mycobacterium avium complex infection
     Dosage: 1 TASBLET THREE TIMES A WEEK ORAL?
     Route: 048
     Dates: start: 20240410

REACTIONS (3)
  - Nonspecific reaction [None]
  - General physical health deterioration [None]
  - Disseminated intravascular coagulation [None]

NARRATIVE: CASE EVENT DATE: 20240422
